FAERS Safety Report 6945361-4 (Version None)
Quarter: 2010Q3

REPORT INFORMATION
  Report Type: 
  Country: None (occurrence: None)
  Receive Date: 20100827
  Receipt Date: 20100819
  Transmission Date: 20110219
  Serious: Yes (Other)
  Sender: FDA-Public Use
  Company Number: US-ROCHE-693505

PATIENT
  Sex: Female

DRUGS (5)
  1. PEGASYS [Suspect]
     Indication: HEPATITIS C
     Dosage: FORM: PRE FILLED SYRINGE (PFS)
     Route: 058
     Dates: start: 20100312
  2. COPEGUS [Suspect]
     Indication: HEPATITIS C
     Dosage: DIVIDED DOSES
     Route: 048
     Dates: start: 20100312
  3. BACTRIM [Concomitant]
     Indication: INFECTION
  4. KEFLEX [Concomitant]
     Indication: INFECTION
  5. VICOPROFEN [Concomitant]
     Indication: INFECTION

REACTIONS (19)
  - ABSCESS LIMB [None]
  - ANAEMIA [None]
  - ARTHRALGIA [None]
  - ARTHROPOD BITE [None]
  - BALANCE DISORDER [None]
  - BLOOD SODIUM DECREASED [None]
  - CHILLS [None]
  - DIVERTICULITIS [None]
  - DIZZINESS [None]
  - FULL BLOOD COUNT DECREASED [None]
  - INFECTED SKIN ULCER [None]
  - INFECTION [None]
  - MYALGIA [None]
  - NAUSEA [None]
  - ORAL INFECTION [None]
  - RASH [None]
  - STOMATITIS [None]
  - VOMITING [None]
  - VULVOVAGINAL MYCOTIC INFECTION [None]
